FAERS Safety Report 4450758-0 (Version None)
Quarter: 2004Q3

REPORT INFORMATION
  Report Type: 
  Country: None (occurrence: None)
  Receive Date: 20040913
  Receipt Date: 20040913
  Transmission Date: 20050211
  Serious: No
  Sender: FDA-Public Use
  Company Number: None

PATIENT
  Sex: Female
  Weight: 49.8957 kg

DRUGS (2)
  1. RID PURE ALTERNATICE LICE AND EGG REMVAL SYSTEM [Suspect]
     Indication: LICE INFESTATION
     Dosage: 4 OUNCE BOTTLE IN KIT. USED ABOUT HALF THE BOTTLE AS INSTRUCTED (2-3 OU) FOR MY HAIR
     Dates: start: 20040810, end: 20040810
  2. DEMETHICONE [Concomitant]

REACTIONS (7)
  - APPLICATION SITE INFLAMMATION [None]
  - APPLICATION SITE REACTION [None]
  - APPLICATION SITE VESICLES [None]
  - ERYTHEMA [None]
  - PRURITUS [None]
  - RASH SCALY [None]
  - SKIN BURNING SENSATION [None]
